FAERS Safety Report 10830663 (Version 1)
Quarter: 2015Q1

REPORT INFORMATION
  Report Type: Report from Study
  Country: US (occurrence: US)
  Receive Date: 20150219
  Receipt Date: 20150219
  Transmission Date: 20150721
  Serious: Yes (Other)
  Sender: FDA-Public Use
  Company Number: US-PFIZER INC-2015060403

PATIENT
  Age: 18 Year
  Sex: Female

DRUGS (6)
  1. LUVOX [Concomitant]
     Active Substance: FLUVOXAMINE MALEATE
     Indication: DEPRESSION
  2. LUPRON DEPOT [Suspect]
     Active Substance: LEUPROLIDE ACETATE
     Indication: ENDOMETRIOSIS
     Dosage: UNK
     Dates: end: 2003
  3. LUVOX [Concomitant]
     Active Substance: FLUVOXAMINE MALEATE
     Indication: OBSESSIVE-COMPULSIVE DISORDER
     Dosage: 50 MG IN AM AND 100MG IN PM
     Dates: start: 2005, end: 2010
  4. LUPRON DEPOT [Suspect]
     Active Substance: LEUPROLIDE ACETATE
     Dosage: 11.25 MG, CYCLIC (1 IN 3M)
     Route: 058
     Dates: start: 2004, end: 2005
  5. DEPO-PROVERA [Suspect]
     Active Substance: MEDROXYPROGESTERONE ACETATE
     Indication: ENDOMETRIOSIS
     Dosage: UNK
     Dates: start: 2004, end: 2004
  6. DEPO-PROVERA [Suspect]
     Active Substance: MEDROXYPROGESTERONE ACETATE
     Dosage: UNK, CYCLIC
     Dates: start: 2005, end: 2010

REACTIONS (13)
  - Abortion spontaneous [Unknown]
  - Arthropathy [Unknown]
  - Arthralgia [Unknown]
  - Endometriosis [Unknown]
  - Lipoma [Unknown]
  - Night sweats [Recovered/Resolved]
  - Arthropathy [Unknown]
  - Menorrhagia [Recovered/Resolved]
  - Disease progression [Unknown]
  - Osteopenia [Unknown]
  - Fatigue [Recovered/Resolved]
  - Vitamin D deficiency [Unknown]
  - Infertility [Unknown]

NARRATIVE: CASE EVENT DATE: 2005
